FAERS Safety Report 9542233 (Version 1)
Quarter: 2013Q3

REPORT INFORMATION
  Report Type: Spontaneous
  Country: FR (occurrence: FR)
  Receive Date: 20130923
  Receipt Date: 20130923
  Transmission Date: 20140515
  Serious: Yes (Hospitalization)
  Sender: FDA-Public Use
  Company Number: FR-JNJFOC-20130909298

PATIENT
  Age: 75 Year
  Sex: Female

DRUGS (11)
  1. RISPERDALORO [Suspect]
     Indication: ABNORMAL BEHAVIOUR
     Route: 048
     Dates: start: 201110
  2. EFFEXOR [Suspect]
     Indication: ABNORMAL BEHAVIOUR
     Route: 048
     Dates: start: 201110
  3. XANAX [Suspect]
     Indication: ABNORMAL BEHAVIOUR
     Dosage: 0.25MG/D (0.125 +0.125) AND 0.25 MG/D
     Route: 048
     Dates: start: 201110
  4. XANAX [Suspect]
     Indication: ABNORMAL BEHAVIOUR
     Route: 048
     Dates: start: 201110
  5. IMOVANE [Suspect]
     Indication: ABNORMAL BEHAVIOUR
     Route: 048
     Dates: start: 201110
  6. IMOVANE [Suspect]
     Indication: ABNORMAL BEHAVIOUR
     Route: 048
     Dates: start: 201110, end: 20120312
  7. MICARDIS [Concomitant]
     Route: 048
  8. CRESTOR [Concomitant]
     Route: 048
  9. GLUCOPHAGE [Concomitant]
     Route: 048
  10. HYDREA [Concomitant]
     Route: 048
  11. KARDEGIC [Concomitant]
     Route: 048
     Dates: start: 201110

REACTIONS (3)
  - Fall [Recovered/Resolved]
  - Malaise [Recovered/Resolved]
  - Injury [Unknown]
